FAERS Safety Report 23659516 (Version 1)
Quarter: 2024Q1

REPORT INFORMATION
  Report Type: Spontaneous
  Country: US (occurrence: US)
  Receive Date: 20240321
  Receipt Date: 20240321
  Transmission Date: 20240410
  Serious: No
  Sender: FDA-Public Use
  Company Number: US-PFIZER INC-202400063076

PATIENT
  Age: 8 Year
  Sex: Female

DRUGS (2)
  1. OXBRYTA [Suspect]
     Active Substance: VOXELOTOR
     Dosage: 900 MG (3 TABLETS OF 300 MG), 1X/DAY
     Route: 048
     Dates: start: 20240313
  2. OXBRYTA [Suspect]
     Active Substance: VOXELOTOR
     Dosage: 300 MG (ONE TABLET AT A TIME NOW)
     Dates: start: 20240313

REACTIONS (2)
  - Abdominal pain [Unknown]
  - Vomiting [Unknown]

NARRATIVE: CASE EVENT DATE: 20240313
